FAERS Safety Report 7627163-9 (Version None)
Quarter: 2011Q3

REPORT INFORMATION
  Report Type: 
  Country: None (occurrence: None)
  Receive Date: 20110721
  Receipt Date: 20110116
  Transmission Date: 20111222
  Serious: No
  Sender: FDA-Public Use
  Company Number: US-BAYER-2011-012138

PATIENT
  Age: 51 Year
  Sex: Male

DRUGS (1)
  1. BETASERON [Suspect]
     Indication: RELAPSING-REMITTING MULTIPLE SCLEROSIS
     Dosage: 0.25 MG, UNK
     Route: 058
     Dates: start: 20101101

REACTIONS (3)
  - INFLUENZA LIKE ILLNESS [None]
  - ARTHRALGIA [None]
  - URINARY INCONTINENCE [None]
